FAERS Safety Report 5965300-2 (Version None)
Quarter: 2008Q4

REPORT INFORMATION
  Report Type: 
  Country: None (occurrence: None)
  Receive Date: 20081125
  Receipt Date: 20081118
  Transmission Date: 20090506
  Serious: Yes (Death)
  Sender: FDA-Public Use
  Company Number: US-ROCHE-596112

PATIENT
  Sex: Female
  Weight: 78.9 kg

DRUGS (1)
  1. CAPECITABINE [Suspect]
     Indication: COLORECTAL CANCER
     Route: 065

REACTIONS (2)
  - COLORECTAL CANCER METASTATIC [None]
  - NO THERAPEUTIC RESPONSE [None]
